FAERS Safety Report 12486073 (Version 1)
Quarter: 2016Q2

REPORT INFORMATION
  Report Type: Spontaneous
  Country: US (occurrence: US)
  Receive Date: 20160621
  Receipt Date: 20160621
  Transmission Date: 20160815
  Serious: Yes (Other)
  Sender: FDA-Public Use
  Company Number: US-PFIZER INC-2016276271

PATIENT
  Age: 41 Year
  Sex: Female
  Weight: 57 kg

DRUGS (12)
  1. LYRICA [Suspect]
     Active Substance: PREGABALIN
     Dosage: 50 MG, 2X/DAY
  2. SYNTHROID [Concomitant]
     Active Substance: LEVOTHYROXINE SODIUM
     Dosage: 75 UG, ALTERNATE DAY
  3. VENTOLIN HFA [Concomitant]
     Active Substance: ALBUTEROL SULFATE
     Dosage: 2 DF, AS NEEDED (EVERY 4 HOURS)
  4. LYRICA [Suspect]
     Active Substance: PREGABALIN
     Indication: SEIZURE
     Dosage: 50 MG, 3X/DAY
     Dates: start: 201511, end: 201603
  5. LYRICA [Suspect]
     Active Substance: PREGABALIN
     Dosage: 25 MG, 2X/DAY
     Route: 048
  6. SYNTHROID [Concomitant]
     Active Substance: LEVOTHYROXINE SODIUM
     Dosage: 50 UG, ALTERNATE DAY
  7. PYRIDOXINE HCL [Concomitant]
     Active Substance: PYRIDOXINE HYDROCHLORIDE
     Dosage: 100 MG, 1X/DAY AT BEDTIME
  8. KEPPRA [Concomitant]
     Active Substance: LEVETIRACETAM
     Dosage: 750 MG, 2X/DAY
     Route: 048
     Dates: start: 2016
  9. LAMICTAL [Concomitant]
     Active Substance: LAMOTRIGINE
     Dosage: 100 MG, 2X/DAY
     Route: 048
  10. ATIVAN [Concomitant]
     Active Substance: LORAZEPAM
     Dosage: 0.50 MG, AS NEEDED (EVERY 8 HOURS)
  11. PREMARIN [Concomitant]
     Active Substance: ESTROGENS, CONJUGATED
     Dosage: 0.625 MG, 1X/DAY
  12. KEPPRA [Concomitant]
     Active Substance: LEVETIRACETAM
     Indication: SEIZURE
     Dosage: 1000 UNK, UNK
     Route: 048
     Dates: start: 2008

REACTIONS (9)
  - Condition aggravated [Unknown]
  - Tremor [Unknown]
  - Asthenia [Unknown]
  - Feeling abnormal [Recovering/Resolving]
  - Lethargy [Recovering/Resolving]
  - Gait disturbance [Recovering/Resolving]
  - Paraesthesia [Unknown]
  - Seizure [Unknown]
  - Drug intolerance [Unknown]

NARRATIVE: CASE EVENT DATE: 201511
